FAERS Safety Report 5450350-5 (Version None)
Quarter: 2007Q3

REPORT INFORMATION
  Report Type: 
  Country: None (occurrence: None)
  Receive Date: 20070912
  Receipt Date: 20070831
  Transmission Date: 20080115
  Serious: Yes (Other)
  Sender: FDA-Public Use
  Company Number: AU-PFIZER INC-2007073673

PATIENT
  Age: 67 Year
  Sex: Male

DRUGS (3)
  1. PRAZOSIN HCL [Suspect]
     Indication: PROSTATIC DISORDER
     Dates: start: 20070505, end: 20070509
  2. DILANTIN [Concomitant]
     Indication: EPILEPSY
  3. ASTRIX [Concomitant]

REACTIONS (2)
  - BLINDNESS [None]
  - VISION BLURRED [None]
